FAERS Safety Report 19184094 (Version 1)
Quarter: 2021Q2

REPORT INFORMATION
  Report Type: Spontaneous
  Country: US (occurrence: US)
  Receive Date: 20210426
  Receipt Date: 20210426
  Transmission Date: 20210717
  Serious: No
  Sender: FDA-Public Use
  Company Number: None

PATIENT
  Age: 43 Year
  Sex: Female
  Weight: 62 kg

DRUGS (1)
  1. SULFAMETHOXAZOLE?TMP DS (GENERIC BACTRIM) [Suspect]
     Active Substance: SULFAMETHOXAZOLE\TRIMETHOPRIM
     Indication: URINARY TRACT INFECTION
     Dosage: ?          QUANTITY:1 TABLET(S);?
     Route: 048
     Dates: start: 20210411, end: 20210413

REACTIONS (6)
  - Decreased appetite [None]
  - Headache [None]
  - Rash [None]
  - Thirst [None]
  - Photosensitivity reaction [None]
  - Pyrexia [None]

NARRATIVE: CASE EVENT DATE: 20210413
